FAERS Safety Report 12281843 (Version 2)
Quarter: 2016Q3

REPORT INFORMATION
  Report Type: Other
  Country: IT (occurrence: IT)
  Receive Date: 20160419
  Receipt Date: 20160705
  Transmission Date: 20161109
  Serious: Yes (Hospitalization)
  Sender: FDA-Public Use
  Company Number: IT-ARIAD PHARMACEUTICALS, INC-2016IT006368

PATIENT
  Age: 74 Year
  Sex: Female

DRUGS (3)
  1. HOMEOPATICS NOS [Suspect]
     Active Substance: HOMEOPATHICS
     Indication: ACUTE LYMPHOCYTIC LEUKAEMIA
     Dosage: UNK
  2. ICLUSIG [Suspect]
     Active Substance: PONATINIB
     Indication: ACUTE LYMPHOCYTIC LEUKAEMIA
     Dosage: 45 MG, QD
     Route: 048
     Dates: start: 20160227, end: 20160318
  3. ICLUSIG [Suspect]
     Active Substance: PONATINIB
     Dosage: UNK
     Route: 048

REACTIONS (2)
  - Erythema [Not Recovered/Not Resolved]
  - Xerosis [Not Recovered/Not Resolved]

NARRATIVE: CASE EVENT DATE: 20160317
